FAERS Safety Report 5909420-7 (Version None)
Quarter: 2008Q4

REPORT INFORMATION
  Report Type: 
  Country: None (occurrence: None)
  Receive Date: 20081006
  Receipt Date: 20080924
  Transmission Date: 20090506
  Serious: Yes (Death, Hospitalization, Other)
  Sender: FDA-Public Use
  Company Number: US-PFIZER INC-2008081474

PATIENT
  Sex: Female
  Weight: 66.7 kg

DRUGS (20)
  1. DILANTIN [Suspect]
     Indication: CONVULSION
     Route: 048
     Dates: start: 20080603, end: 20080714
  2. LEVAQUIN [Concomitant]
  3. DECADRON [Concomitant]
  4. CELEBREX [Concomitant]
  5. FOSAMAX [Concomitant]
  6. GLUCOTROL [Concomitant]
     Dosage: DAILY DOSE:5MG
  7. PRILOSEC [Concomitant]
     Dosage: DAILY DOSE:20MG
  8. TRICOR [Concomitant]
  9. GLUCOPHAGE [Concomitant]
     Dosage: DAILY DOSE:1000MG
  10. CYMBALTA [Concomitant]
  11. TOPROL-XL [Concomitant]
     Dosage: DAILY DOSE:100MG
  12. ACETYLSALICYLIC ACID SRT [Concomitant]
  13. COZAAR [Concomitant]
     Dosage: DAILY DOSE:10MG
  14. HYDROCHLOROTHIAZIDE [Concomitant]
     Dosage: DAILY DOSE:25MG
  15. NORVASC [Concomitant]
     Dosage: DAILY DOSE:10MG
  16. CATAPRES [Concomitant]
  17. SYMBICORT [Concomitant]
  18. CHLORPHENIRAMINE MALEATE [Concomitant]
  19. AVELOX [Concomitant]
  20. LISINOPRIL [Concomitant]

REACTIONS (3)
  - STEVENS-JOHNSON SYNDROME [None]
  - THERAPEUTIC AGENT TOXICITY [None]
  - TOXIC EPIDERMAL NECROLYSIS [None]
